FAERS Safety Report 22623769 (Version 1)
Quarter: 2023Q2

REPORT INFORMATION
  Report Type: Spontaneous
  Country: US (occurrence: US)
  Receive Date: 20230621
  Receipt Date: 20230621
  Transmission Date: 20230721
  Serious: No
  Sender: FDA-Public Use
  Company Number: US-MYLANLABS-2023M1064264

PATIENT
  Sex: Female
  Weight: 80.73 kg

DRUGS (5)
  1. LATANOPROST [Suspect]
     Active Substance: LATANOPROST
     Indication: Intraocular pressure increased
     Dosage: UNK
     Route: 047
  2. IBRANCE [Concomitant]
     Active Substance: PALBOCICLIB
     Indication: Breast cancer metastatic
     Dosage: 100 MILLIGRAM, QD (21 DAYS)
     Route: 065
     Dates: start: 201804
  3. LETROZOLE [Concomitant]
     Active Substance: LETROZOLE
     Dosage: UNK
     Route: 065
     Dates: start: 201804
  4. XGEVA [Concomitant]
     Active Substance: DENOSUMAB
     Dosage: UNK
     Route: 065
     Dates: start: 201804
  5. GOSERELIN [Concomitant]
     Active Substance: GOSERELIN
     Dosage: UNK
     Route: 065
     Dates: start: 201804

REACTIONS (2)
  - Nervousness [Recovered/Resolved]
  - Drug ineffective [Unknown]
